FAERS Safety Report 13717382 (Version 1)
Quarter: 2017Q3

REPORT INFORMATION
  Report Type: Spontaneous
  Country: US (occurrence: US)
  Receive Date: 20170705
  Receipt Date: 20170705
  Transmission Date: 20171127
  Serious: No
  Sender: FDA-Public Use
  Company Number: None

PATIENT
  Age: 42 Year
  Sex: Male
  Weight: 78.93 kg

DRUGS (6)
  1. PRAZOSIN. [Concomitant]
     Active Substance: PRAZOSIN
  2. CYMBALTA [Concomitant]
     Active Substance: DULOXETINE HYDROCHLORIDE
  3. LITHIUM. [Concomitant]
     Active Substance: LITHIUM
  4. TOPAMAX [Suspect]
     Active Substance: TOPIRAMATE
     Indication: MOOD ALTERED
     Dosage: 50 MG AM AND 100 MG PM (2-50MG)
     Route: 048
     Dates: start: 20160307, end: 20160607
  5. MELATONIN [Concomitant]
     Active Substance: MELATONIN
  6. TOPAMAX [Suspect]
     Active Substance: TOPIRAMATE
     Indication: MIGRAINE PROPHYLAXIS
     Dosage: 50 MG AM AND 100 MG PM (2-50MG)
     Route: 048
     Dates: start: 20160307, end: 20160607

REACTIONS (4)
  - Heart rate decreased [None]
  - Dyspnoea [None]
  - Mental impairment [None]
  - Blood pressure decreased [None]

NARRATIVE: CASE EVENT DATE: 20160321
